FAERS Safety Report 18381444 (Version 3)
Quarter: 2020Q4

REPORT INFORMATION
  Report Type: Spontaneous
  Country: ES (occurrence: ES)
  Receive Date: 20201014
  Receipt Date: 20201221
  Transmission Date: 20210114
  Serious: Yes (Other)
  Sender: FDA-Public Use
  Company Number: ES-ALEXION-A202015054

PATIENT
  Sex: Female

DRUGS (2)
  1. SOLIRIS [Suspect]
     Active Substance: ECULIZUMAB
     Indication: OFF LABEL USE
  2. SOLIRIS [Suspect]
     Active Substance: ECULIZUMAB
     Indication: C3 GLOMERULOPATHY
     Route: 065

REACTIONS (6)
  - Nephropathy [Unknown]
  - Off label use [Recovered/Resolved]
  - Antibody test abnormal [Unknown]
  - Condition aggravated [Unknown]
  - Renal failure [Unknown]
  - Drug ineffective [Unknown]
